FAERS Safety Report 10557414 (Version 2)
Quarter: 2015Q1

REPORT INFORMATION
  Report Type: Report from Study
  Country: US (occurrence: US)
  Receive Date: 20141031
  Receipt Date: 20150129
  Transmission Date: 20150720
  Serious: Yes (Death)
  Sender: FDA-Public Use
  Company Number: US-SA-2014SA147576

PATIENT
  Age: 54 Year
  Sex: Female
  Weight: 53 kg

DRUGS (10)
  1. LIPITOR [Concomitant]
     Active Substance: ATORVASTATIN CALCIUM
     Dates: start: 20130416
  2. BENADRYL [Concomitant]
     Active Substance: DIPHENHYDRAMINE HYDROCHLORIDE
     Dates: start: 20111024
  3. PLAVIX [Concomitant]
     Active Substance: CLOPIDOGREL BISULFATE
     Dates: start: 20130628
  4. NORCO [Concomitant]
     Active Substance: ACETAMINOPHEN\HYDROCODONE BITARTRATE
     Dosage: 10 325 MG
  5. ROBAXIN [Concomitant]
     Active Substance: METHOCARBAMOL
     Dates: start: 20111024
  6. XANAX [Concomitant]
     Active Substance: ALPRAZOLAM
  7. NITROSTAT [Concomitant]
     Active Substance: NITROGLYCERIN
     Dates: start: 20130807
  8. PRINIVIL [Concomitant]
     Active Substance: LISINOPRIL
     Dates: start: 20120328
  9. MULTAQ [Suspect]
     Active Substance: DRONEDARONE
     Indication: ATRIAL FIBRILLATION
     Route: 048
     Dates: start: 20130628
  10. LASIX [Concomitant]
     Active Substance: FUROSEMIDE
     Dates: start: 20111031

REACTIONS (1)
  - Death [Fatal]

NARRATIVE: CASE EVENT DATE: 20140105
